FAERS Safety Report 4871217-7 (Version None)
Quarter: 2005Q4

REPORT INFORMATION
  Report Type: 
  Country: None (occurrence: None)
  Receive Date: 20051229
  Receipt Date: 20051223
  Transmission Date: 20060501
  Serious: Yes (Hospitalization, Other)
  Sender: FDA-Public Use
  Company Number: THQ2005A01016

PATIENT
  Age: 69 Year
  Sex: Female

DRUGS (6)
  1. ACTOS [Suspect]
     Indication: DIABETES MELLITUS INSULIN-DEPENDENT
     Dosage: 30 MG (30 MG, 1 IN 1 D) PER ORAL
     Route: 048
     Dates: start: 20031101, end: 20050301
  2. ATORVASTATIN [Concomitant]
  3. FUROSEMIDE [Concomitant]
  4. METFORMIN [Concomitant]
  5. NOVOLIN 70/30 (HUMAN MIXTARD) [Concomitant]
  6. AMLODIPINE [Concomitant]

REACTIONS (4)
  - CARDIAC FAILURE CONGESTIVE [None]
  - CORONARY ARTERY DISEASE [None]
  - OEDEMA [None]
  - WEIGHT INCREASED [None]
